FAERS Safety Report 14714514 (Version 2)
Quarter: 2018Q2

REPORT INFORMATION
  Report Type: Spontaneous
  Country: US (occurrence: US)
  Receive Date: 20180404
  Receipt Date: 20180409
  Transmission Date: 20180711
  Serious: Yes (Hospitalization, Other)
  Sender: FDA-Public Use
  Company Number: US-PFIZER INC-2018136907

PATIENT
  Age: 41 Year
  Sex: Female
  Weight: 77.1 kg

DRUGS (2)
  1. LYRICA [Suspect]
     Active Substance: PREGABALIN
     Indication: FIBROMYALGIA
     Dosage: 75 MG, 1X/DAY
     Dates: start: 20180321, end: 20180324
  2. LYRICA [Suspect]
     Active Substance: PREGABALIN
     Dosage: 75 MG, 2X/DAY
     Dates: start: 20180325

REACTIONS (4)
  - Loss of consciousness [Recovered/Resolved]
  - Speech disorder [Unknown]
  - Cerebrovascular accident [Recovering/Resolving]
  - Loss of personal independence in daily activities [Unknown]

NARRATIVE: CASE EVENT DATE: 201803
